FAERS Safety Report 4585050-7 (Version None)
Quarter: 2005Q1

REPORT INFORMATION
  Report Type: 
  Country: None (occurrence: None)
  Receive Date: 20050217
  Receipt Date: 20041214
  Transmission Date: 20050727
  Serious: No
  Sender: FDA-Public Use
  Company Number: US-GLAXOSMITHKLINE-A0537269A

PATIENT
  Age: 59 Year
  Sex: Female

DRUGS (8)
  1. WELLBUTRIN [Suspect]
     Indication: ILL-DEFINED DISORDER
     Dosage: 300MG PER DAY
     Route: 048
     Dates: start: 20040901
  2. ALBUTEROL [Concomitant]
  3. ENTEX CAP [Concomitant]
  4. SERZONE [Concomitant]
  5. HRT [Concomitant]
  6. FLONASE [Concomitant]
  7. IMITREX [Concomitant]
  8. VICODIN [Concomitant]

REACTIONS (4)
  - AGITATION [None]
  - ILL-DEFINED DISORDER [None]
  - MIGRAINE [None]
  - WEIGHT DECREASED [None]
